FAERS Safety Report 21600464 (Version 2)
Quarter: 2022Q4

REPORT INFORMATION
  Report Type: Report from Study
  Country: ES (occurrence: ES)
  Receive Date: 20221116
  Receipt Date: 20221122
  Transmission Date: 20230113
  Serious: Yes (Death)
  Sender: FDA-Public Use
  Company Number: ES-JNJFOC-20221111738

PATIENT

DRUGS (1)
  1. TECLISTAMAB [Suspect]
     Active Substance: TECLISTAMAB
     Indication: Plasma cell myeloma
     Route: 065
     Dates: start: 20220804

REACTIONS (1)
  - Herpes virus infection [Fatal]

NARRATIVE: CASE EVENT DATE: 20221103
